FAERS Safety Report 6031840-3 (Version None)
Quarter: 2008Q4

REPORT INFORMATION
  Report Type: 
  Country: None (occurrence: None)
  Receive Date: 20081224
  Receipt Date: 20080827
  Transmission Date: 20090506
  Serious: No
  Sender: FDA-Public Use
  Company Number: 2008PV036587

PATIENT
  Sex: Female

DRUGS (6)
  1. SYMLIN [Suspect]
     Indication: GLUCOSE TOLERANCE IMPAIRED
     Dosage: 240 MCG; TID; SC,; SC,; 120 MCG; TID; SC
     Route: 058
     Dates: start: 20070101, end: 20080101
  2. SYMLIN [Suspect]
     Indication: WEIGHT DECREASED
     Dosage: 240 MCG; TID; SC,; SC,; 120 MCG; TID; SC
     Route: 058
     Dates: start: 20070101, end: 20080101
  3. SYMLIN [Suspect]
     Indication: GLUCOSE TOLERANCE IMPAIRED
     Dosage: 240 MCG; TID; SC,; SC,; 120 MCG; TID; SC
     Route: 058
     Dates: start: 20080101, end: 20080101
  4. SYMLIN [Suspect]
     Indication: WEIGHT DECREASED
     Dosage: 240 MCG; TID; SC,; SC,; 120 MCG; TID; SC
     Route: 058
     Dates: start: 20080101, end: 20080101
  5. SYMLIN [Suspect]
     Indication: GLUCOSE TOLERANCE IMPAIRED
     Dosage: 240 MCG; TID; SC,; SC,; 120 MCG; TID; SC
     Route: 058
     Dates: start: 20080101, end: 20080701
  6. SYMLIN [Suspect]
     Indication: WEIGHT DECREASED
     Dosage: 240 MCG; TID; SC,; SC,; 120 MCG; TID; SC
     Route: 058
     Dates: start: 20080101, end: 20080701

REACTIONS (1)
  - BLOOD GLUCOSE INCREASED [None]
